FAERS Safety Report 11812841 (Version 2)
Quarter: 2016Q1

REPORT INFORMATION
  Report Type: Spontaneous
  Country: IT (occurrence: IT)
  Receive Date: 20151209
  Receipt Date: 20160216
  Transmission Date: 20160525
  Serious: Yes (Hospitalization)
  Sender: FDA-Public Use
  Company Number: IT-UCBSA-2015039471

PATIENT
  Age: 10 Year
  Sex: Male
  Weight: 33 kg

DRUGS (2)
  1. KEPPRA [Suspect]
     Active Substance: LEVETIRACETAM
     Indication: PRODUCT USED FOR UNKNOWN INDICATION
     Dosage: 500 MG, DAILY (STRENGTH: 100 MG/ML )
     Route: 048
     Dates: start: 20151109, end: 20151113
  2. TEGRETOL [Interacting]
     Active Substance: CARBAMAZEPINE
     Indication: PARTIAL SEIZURES
     Dosage: 200 MG, ONCE DAILY (QD)
     Route: 048
     Dates: start: 20151024, end: 20151113

REACTIONS (2)
  - Drug interaction [Unknown]
  - Rash maculo-papular [Recovering/Resolving]

NARRATIVE: CASE EVENT DATE: 201511
